FAERS Safety Report 12212601 (Version 6)
Quarter: 2020Q2

REPORT INFORMATION
  Report Type: Report from Study
  Country: BR (occurrence: BR)
  Receive Date: 20160328
  Receipt Date: 20200521
  Transmission Date: 20200713
  Serious: Yes (Hospitalization, Other)
  Sender: FDA-Public Use
  Company Number: BR-ROCHE-1223250

PATIENT
  Age: 55 Year
  Sex: Female
  Weight: 63 kg

DRUGS (12)
  1. XOLAIR [Suspect]
     Active Substance: OMALIZUMAB
     Route: 058
     Dates: start: 20130327
  2. XOLAIR [Suspect]
     Active Substance: OMALIZUMAB
     Route: 058
  3. XOLAIR [Suspect]
     Active Substance: OMALIZUMAB
     Route: 058
     Dates: start: 20170507
  4. PREDNISONE. [Concomitant]
     Active Substance: PREDNISONE
     Indication: COUGH
     Dosage: 1 DF, DAILY
     Route: 048
     Dates: start: 1994
  5. XOLAIR [Suspect]
     Active Substance: OMALIZUMAB
     Route: 058
     Dates: start: 20130601
  6. XOLAIR [Suspect]
     Active Substance: OMALIZUMAB
     Route: 058
     Dates: start: 20170517
  7. AEROLIN [Concomitant]
     Active Substance: ALBUTEROL
     Indication: BRONCHITIS
     Route: 055
     Dates: start: 1994
  8. XOLAIR [Suspect]
     Active Substance: OMALIZUMAB
     Route: 058
     Dates: start: 20190422
  9. XOLAIR [Suspect]
     Active Substance: OMALIZUMAB
     Route: 058
     Dates: start: 20130427
  10. AMINOPHYLLINE. [Concomitant]
     Active Substance: AMINOPHYLLINE
     Indication: BRONCHITIS
     Dosage: 4 DF, DAILY
     Route: 048
     Dates: start: 1994
  11. XOLAIR [Suspect]
     Active Substance: OMALIZUMAB
     Indication: ASTHMA
     Route: 058
     Dates: start: 20130227
  12. XOLAIR [Suspect]
     Active Substance: OMALIZUMAB
     Route: 058
     Dates: start: 20130701

REACTIONS (13)
  - Malaise [Unknown]
  - Asthmatic crisis [Recovering/Resolving]
  - Feeling abnormal [Recovering/Resolving]
  - Blood pressure increased [Not Recovered/Not Resolved]
  - Abdominal pain [Recovered/Resolved]
  - Dyspnoea [Recovering/Resolving]
  - Hypertension [Recovered/Resolved]
  - Bone pain [Unknown]
  - Migraine [Unknown]
  - Influenza [Unknown]
  - Chest pain [Unknown]
  - Speech disorder [Unknown]
  - Pyrexia [Unknown]

NARRATIVE: CASE EVENT DATE: 20130427
